FAERS Safety Report 9847330 (Version 2)
Quarter: 2014Q1

REPORT INFORMATION
  Report Type: Spontaneous
  Country: NL (occurrence: NL)
  Receive Date: 20140127
  Receipt Date: 20140127
  Transmission Date: 20141002
  Serious: Yes (Death, Other)
  Sender: FDA-Public Use
  Company Number: NL-BAXTER-2013BAX051224

PATIENT
  Sex: Male

DRUGS (4)
  1. EXTRANEAL [Suspect]
     Indication: HYPERTENSION
     Route: 033
  2. EXTRANEAL [Suspect]
     Indication: RENAL FAILURE
  3. PHYSIONEAL 40 GLUCOSE 1.36% W/V / 13.6 MG/ML [Suspect]
     Indication: HYPERTENSION
     Route: 033
  4. PHYSIONEAL 40 GLUCOSE 1.36% W/V / 13.6 MG/ML [Suspect]
     Indication: RENAL FAILURE

REACTIONS (2)
  - Therapy cessation [Fatal]
  - Cerebrovascular accident [Unknown]
